FAERS Safety Report 9471456 (Version 2)
Quarter: 2013Q3

REPORT INFORMATION
  Report Type: Report from Study
  Country: ZA (occurrence: ZA)
  Receive Date: 20130822
  Receipt Date: 20130822
  Transmission Date: 20140515
  Serious: Yes (Hospitalization)
  Sender: FDA-Public Use
  Company Number: PHHO2008ZA00974

PATIENT
  Age: 68 Year
  Sex: Male
  Weight: 61 kg

DRUGS (1)
  1. ALISKIREN [Suspect]
     Indication: CARDIOVASCULAR DISORDER
     Route: 048
     Dates: start: 20080110

REACTIONS (5)
  - Cholecystitis [Recovered/Resolved]
  - Abdominal pain upper [Recovered/Resolved]
  - Abdominal tenderness [Recovered/Resolved]
  - Cholelithiasis [Recovered/Resolved]
  - Concomitant disease progression [Recovered/Resolved]
